FAERS Safety Report 5697406-X (Version None)
Quarter: 2008Q2

REPORT INFORMATION
  Report Type: 
  Country: None (occurrence: None)
  Receive Date: 20080407
  Receipt Date: 20080330
  Transmission Date: 20081010
  Serious: Yes (Death, Other)
  Sender: FDA-Public Use
  Company Number: PHHY2008BR04171

PATIENT
  Age: 84 Year
  Sex: Female

DRUGS (5)
  1. CALCIUM [Concomitant]
  2. VITAMIN D [Concomitant]
  3. ANTIHYPERTENSIVES [Concomitant]
  4. PIROXIN [Concomitant]
     Dosage: ONCE DAILY FOR 4 DAYS
     Route: 060
  5. ACLASTA [Suspect]
     Indication: OSTEOPOROSIS
     Route: 042

REACTIONS (6)
  - ACUTE MYOCARDIAL INFARCTION [None]
  - BURNING SENSATION [None]
  - DYSPNOEA [None]
  - FATIGUE [None]
  - MALAISE [None]
  - URINARY TRACT INFECTION [None]
